FAERS Safety Report 6554968-8 (Version None)
Quarter: 2010Q1

REPORT INFORMATION
  Report Type: 
  Country: None (occurrence: None)
  Receive Date: 20100127
  Receipt Date: 20100115
  Transmission Date: 20100710
  Serious: Yes (Other)
  Sender: FDA-Public Use
  Company Number: US-JNJFOC-20100107144

PATIENT
  Sex: Female
  Weight: 77.11 kg

DRUGS (3)
  1. ULTRAM ER [Suspect]
     Indication: BACK PAIN
     Route: 048
  2. ULTRAM [Suspect]
     Indication: BACK PAIN
     Route: 048
  3. PROZAC [Interacting]
     Indication: DEPRESSION
     Route: 065

REACTIONS (4)
  - CONVULSION [None]
  - DRUG INTERACTION [None]
  - DRUG SCREEN POSITIVE [None]
  - TONGUE BITING [None]
